FAERS Safety Report 19175059 (Version 2)
Quarter: 2021Q2

REPORT INFORMATION
  Report Type: Other
  Country: JP (occurrence: JP)
  Receive Date: 20210424
  Receipt Date: 20210616
  Transmission Date: 20210717
  Serious: Yes (Hospitalization, Other)
  Sender: FDA-Public Use
  Company Number: JP-ROCHE-2816548

PATIENT
  Age: 14 Year
  Sex: Female
  Weight: 52.5 kg

DRUGS (8)
  1. DEXMEDETOMIDINE HYDROCHLORIDE. [Suspect]
     Active Substance: DEXMEDETOMIDINE HYDROCHLORIDE
     Indication: TONIC CONVULSION
     Dosage: UNK
     Route: 042
  2. METHYLPREDNISOLONE. [Suspect]
     Active Substance: METHYLPREDNISOLONE
     Indication: PRODUCT USED FOR UNKNOWN INDICATION
     Dosage: UNK
     Route: 065
  3. DIAZEPAM. [Suspect]
     Active Substance: DIAZEPAM
     Indication: TONIC CONVULSION
     Dosage: UNK
     Route: 065
  4. FLUDARABINE PHOSPHATE. [Concomitant]
     Active Substance: FLUDARABINE PHOSPHATE
     Indication: ACUTE LYMPHOCYTIC LEUKAEMIA
     Dosage: UNK MILLIGRAM/SQ. METER
     Route: 065
     Dates: start: 20200525
  5. TOCILIZUMAB. [Suspect]
     Active Substance: TOCILIZUMAB
     Indication: CYTOKINE RELEASE SYNDROME
     Dosage: DOSAGE WAS UNCERTAIN.
     Route: 042
  6. ENDOXAN LYOPHILISAT [Concomitant]
     Active Substance: CYCLOPHOSPHAMIDE
     Indication: ACUTE LYMPHOCYTIC LEUKAEMIA
     Dosage: UNK MILLIGRAM/SQ. METER
     Route: 065
  7. MIDAZOLAM. [Suspect]
     Active Substance: MIDAZOLAM
     Indication: TONIC CONVULSION
     Dosage: UNK
     Route: 065
  8. TISAGENLECLEUCEL?T [Suspect]
     Active Substance: TISAGENLECLEUCEL
     Indication: ACUTE LYMPHOCYTIC LEUKAEMIA
     Dosage: DOSAGE WAS UNCERTAIN.
     Route: 041
     Dates: start: 20200601

REACTIONS (4)
  - Nervous system disorder [Recovered/Resolved]
  - Meningitis [Unknown]
  - Concomitant disease aggravated [Recovered/Resolved]
  - Leukoencephalopathy [Recovered/Resolved]
